FAERS Safety Report 17047827 (Version 3)
Quarter: 2020Q1

REPORT INFORMATION
  Report Type: Spontaneous
  Country: US (occurrence: US)
  Receive Date: 20191119
  Receipt Date: 20200103
  Transmission Date: 20200409
  Serious: No
  Sender: FDA-Public Use
  Company Number: US-VIFOR (INTERNATIONAL) INC.-VIT-2019-11360

PATIENT
  Age: 86 Year
  Sex: Female

DRUGS (4)
  1. VELTASSA [Suspect]
     Active Substance: PATIROMER
     Route: 048
     Dates: start: 20190508
  2. INSULIN [Concomitant]
     Active Substance: INSULIN NOS
  3. VELTASSA [Suspect]
     Active Substance: PATIROMER
     Indication: HYPERKALAEMIA
     Route: 048
     Dates: start: 20190326
  4. VELTASSA [Suspect]
     Active Substance: PATIROMER
     Dosage: 8.4 GRAM 2 PACKETS DAILY
     Route: 048
     Dates: start: 201910, end: 2019

REACTIONS (2)
  - Peripheral swelling [Unknown]
  - Blood potassium increased [Unknown]

NARRATIVE: CASE EVENT DATE: 2019
